FAERS Safety Report 7061034-4 (Version None)
Quarter: 2010Q4

REPORT INFORMATION
  Report Type: 
  Country: None (occurrence: None)
  Receive Date: 20101026
  Receipt Date: 20101013
  Transmission Date: 20110411
  Serious: Yes (Other)
  Sender: FDA-Public Use
  Company Number: US-PFIZER INC-2008014739

PATIENT
  Sex: Female
  Weight: 61.4 kg

DRUGS (6)
  1. CHANTIX [Suspect]
     Indication: SMOKING CESSATION THERAPY
     Dosage: 0.5 MG, 1X/DAY
     Dates: start: 20080207
  2. CHANTIX [Suspect]
     Dosage: 0.5 MG, 1X/DAY
     Route: 048
     Dates: start: 20080901
  3. CHANTIX [Suspect]
     Dosage: 0.5 MG, 1X/DAY
     Route: 048
     Dates: start: 20100916, end: 20100921
  4. VENLAFAXINE [Interacting]
     Indication: DEPRESSION
     Dosage: 75 MG, 1X/DAY
     Route: 048
     Dates: start: 20100101
  5. ZOLOFT [Concomitant]
     Indication: DEPRESSION
     Dosage: 100 MG, 1X/DAY
     Route: 048
     Dates: start: 20090101
  6. LORAZEPAM [Concomitant]
     Indication: ANXIETY
     Dosage: 1 MG, 3X/DAY
     Route: 048

REACTIONS (12)
  - AGITATION [None]
  - CONSTIPATION [None]
  - DEPRESSION [None]
  - DRUG INTERACTION [None]
  - DYSGEUSIA [None]
  - FLATULENCE [None]
  - MEMORY IMPAIRMENT [None]
  - MOOD ALTERED [None]
  - MULTIPLE SCLEROSIS [None]
  - NAUSEA [None]
  - PANIC REACTION [None]
  - SENSORY DISTURBANCE [None]
